FAERS Safety Report 9599203 (Version 1)
Quarter: 2013Q4

REPORT INFORMATION
  Report Type: Spontaneous
  Country: US (occurrence: US)
  Receive Date: 20131004
  Receipt Date: 20131004
  Transmission Date: 20140711
  Serious: No
  Sender: FDA-Public Use
  Company Number: US-AMGEN-USASP2013027956

PATIENT
  Age: 48 Year
  Sex: Female
  Weight: 72.56 kg

DRUGS (9)
  1. ENBREL [Suspect]
     Indication: PRODUCT USED FOR UNKNOWN INDICATION
     Dosage: 50 MG, QWK
     Route: 058
  2. METHOTREXATE [Concomitant]
     Dosage: 2.5 MG, UNK
  3. PREDNISONE [Concomitant]
     Dosage: 2.5 MG, UNK
  4. DIOVAN [Concomitant]
     Dosage: 40 MG, UNK
  5. METFORMIN [Concomitant]
     Dosage: 1000 MG, UNK
  6. GLIPIZIDE [Concomitant]
     Dosage: 10 MG, UNK
  7. IBUPROFEN [Concomitant]
     Dosage: 200 MG, UNK
  8. VITAMIN C                          /00008001/ [Concomitant]
     Dosage: 500 MG, UNK
  9. IRON [Concomitant]
     Dosage: 325 MG, UNK

REACTIONS (2)
  - Cough [Unknown]
  - Nasopharyngitis [Unknown]
